FAERS Safety Report 7509551-4 (Version None)
Quarter: 2011Q2

REPORT INFORMATION
  Report Type: 
  Country: None (occurrence: None)
  Receive Date: 20110527
  Receipt Date: 20110516
  Transmission Date: 20111010
  Serious: Yes (Other)
  Sender: FDA-Public Use
  Company Number: US-PFIZER INC-2011105142

PATIENT
  Sex: Male
  Weight: 82.54 kg

DRUGS (3)
  1. PRISTIQ [Suspect]
     Indication: DEPRESSION
  2. PRISTIQ [Suspect]
     Indication: SUICIDAL IDEATION
     Dosage: 100 MG, 1X/DAY
     Route: 048
     Dates: start: 20110301
  3. KLONOPIN [Concomitant]
     Dosage: UNK

REACTIONS (3)
  - LOSS OF CONSCIOUSNESS [None]
  - VISUAL ACUITY REDUCED [None]
  - DIPLOPIA [None]
